FAERS Safety Report 5849153-9 (Version None)
Quarter: 2008Q3

REPORT INFORMATION
  Report Type: 
  Country: None (occurrence: None)
  Receive Date: 20080818
  Receipt Date: 20080818
  Transmission Date: 20090109
  Serious: Yes (Other)
  Sender: FDA-Public Use
  Company Number: None

PATIENT
  Sex: Female

DRUGS (1)
  1. TOPAMAX [Suspect]
     Indication: MIGRAINE
     Dosage: 50 MG DAILY PO, 6 WEEKS
     Route: 048

REACTIONS (6)
  - ABNORMAL BEHAVIOUR [None]
  - AFFECTIVE DISORDER [None]
  - DEPRESSION [None]
  - REFUSAL OF TREATMENT BY PATIENT [None]
  - SCRATCH [None]
  - SELF INJURIOUS BEHAVIOUR [None]
